FAERS Safety Report 7947116-0 (Version None)
Quarter: 2011Q4

REPORT INFORMATION
  Report Type: 
  Country: None (occurrence: None)
  Receive Date: 20111129
  Receipt Date: 20111123
  Transmission Date: 20120403
  Serious: Yes (Death, Life-Threatening, Hospitalization)
  Sender: FDA-Public Use
  Company Number: US-AMGEN-USASP2010009956

PATIENT
  Age: 77 Year
  Sex: Female

DRUGS (2)
  1. CORTICOSTEROIDS [Concomitant]
     Indication: IDIOPATHIC THROMBOCYTOPENIC PURPURA
  2. NPLATE [Suspect]
     Indication: IDIOPATHIC THROMBOCYTOPENIC PURPURA
     Dates: start: 20090805

REACTIONS (4)
  - SEPTIC SHOCK [None]
  - INFECTIOUS PERITONITIS [None]
  - GASTROINTESTINAL HAEMORRHAGE [None]
  - VENOUS THROMBOSIS [None]
